FAERS Safety Report 7682946-4 (Version None)
Quarter: 2011Q3

REPORT INFORMATION
  Report Type: 
  Country: None (occurrence: None)
  Receive Date: 20110815
  Receipt Date: 20110805
  Transmission Date: 20111222
  Serious: Yes (Hospitalization)
  Sender: FDA-Public Use
  Company Number: JP-ASTRAZENECA-2011SE47970

PATIENT
  Age: 51 Year
  Sex: Female
  Weight: 68 kg

DRUGS (11)
  1. REZALTAS [Suspect]
     Indication: HYPERTENSION
     Dosage: DOSE UNKNOWN, EVERY DAY
     Route: 048
     Dates: start: 20110709, end: 20110721
  2. DIGOXIN [Suspect]
     Route: 048
     Dates: start: 20110709, end: 20110721
  3. CRESTOR [Suspect]
     Indication: DYSLIPIDAEMIA
     Route: 048
     Dates: start: 20110709, end: 20110721
  4. LEVOTHYROXINE SODIUM [Concomitant]
     Indication: HYPOTHYROIDISM
     Route: 048
     Dates: end: 20110721
  5. ASPIRIN [Suspect]
     Route: 048
     Dates: start: 20110709, end: 20110721
  6. EQUA [Concomitant]
     Indication: DIABETES MELLITUS
     Dosage: DOSE UNKNOWN, EVERY DAY
     Route: 048
     Dates: start: 20110709, end: 20110716
  7. SPIRONOLACTONE [Suspect]
     Indication: HYPERTENSION
     Route: 048
     Dates: start: 20110709, end: 20110721
  8. RASILEZ [Suspect]
     Indication: HYPERTENSION
     Route: 048
     Dates: start: 20110709, end: 20110721
  9. ISOSORBIDE DINITRATE [Suspect]
     Route: 062
     Dates: start: 20110709, end: 20110721
  10. EPARA [Suspect]
     Indication: DYSLIPIDAEMIA
     Route: 048
     Dates: start: 20110709, end: 20110721
  11. ALLOPURINOL [Suspect]
     Indication: HYPERURICAEMIA
     Route: 048
     Dates: start: 20110709, end: 20110721

REACTIONS (3)
  - PYREXIA [None]
  - RASH [None]
  - RENAL FAILURE [None]
